FAERS Safety Report 5898442-0 (Version None)
Quarter: 2008Q3

REPORT INFORMATION
  Report Type: 
  Country: None (occurrence: None)
  Receive Date: 20080925
  Receipt Date: 20071106
  Transmission Date: 20090109
  Serious: No
  Sender: FDA-Public Use
  Company Number: A0691733A

PATIENT
  Age: 73 Year
  Sex: Female

DRUGS (3)
  1. WELLBUTRIN XL [Suspect]
     Indication: DEPRESSION
     Dosage: 150MG ALTERNATE DAYS
     Route: 048
  2. CELEBREX [Concomitant]
  3. TOPROL-XL [Concomitant]

REACTIONS (1)
  - DEPRESSION [None]
